FAERS Safety Report 8057883-6 (Version None)
Quarter: 2012Q1

REPORT INFORMATION
  Report Type: 
  Country: None (occurrence: None)
  Receive Date: 20120120
  Receipt Date: 20090812
  Transmission Date: 20120608
  Serious: No
  Sender: FDA-Public Use
  Company Number: 2009BI025544

PATIENT
  Age: 56 Year
  Sex: Female

DRUGS (1)
  1. TYSABRI [Suspect]
     Indication: MULTIPLE SCLEROSIS
     Route: 042
     Dates: start: 20080414

REACTIONS (9)
  - DYSPNOEA [None]
  - ALOPECIA [None]
  - MUSCLE SPASTICITY [None]
  - MUSCLE DISORDER [None]
  - DRY SKIN [None]
  - FATIGUE [None]
  - MUSCULOSKELETAL STIFFNESS [None]
  - HYPOTHYROIDISM [None]
  - ONYCHOCLASIS [None]
